FAERS Safety Report 5400269-0 (Version None)
Quarter: 2007Q3

REPORT INFORMATION
  Report Type: 
  Country: None (occurrence: None)
  Receive Date: 20070730
  Receipt Date: 20070706
  Transmission Date: 20080115
  Serious: Yes (Other)
  Sender: FDA-Public Use
  Company Number: AT-ROCHE-507206

PATIENT
  Age: 62 Year
  Sex: Female

DRUGS (1)
  1. XELODA [Suspect]
     Dosage: SIX CYCLES.
     Route: 065

REACTIONS (3)
  - HYPERTRIGLYCERIDAEMIA [None]
  - PANCREATIC INSUFFICIENCY [None]
  - TYPE 1 DIABETES MELLITUS [None]
